FAERS Safety Report 19021275 (Version 1)
Quarter: 2021Q1

REPORT INFORMATION
  Report Type: Report from Study
  Country: JP (occurrence: JP)
  Receive Date: 20210317
  Receipt Date: 20210317
  Transmission Date: 20210420
  Serious: Yes (Hospitalization, Other)
  Sender: FDA-Public Use
  Company Number: JP-ROCHE-2789212

PATIENT
  Age: 77 Year
  Sex: Male

DRUGS (3)
  1. TEGAFUR GIMERACIL AND OTERACIL POTASSIUM [Suspect]
     Active Substance: GIMERACIL\OTERACIL\TEGAFUR
     Indication: HER2 POSITIVE GASTRIC CANCER
     Route: 048
     Dates: start: 2018, end: 2018
  2. TRASTUZUMAB. [Suspect]
     Active Substance: TRASTUZUMAB
     Indication: HER2 POSITIVE GASTRIC CANCER
     Route: 041
     Dates: start: 2018, end: 2018
  3. CISPLATIN. [Suspect]
     Active Substance: CISPLATIN
     Indication: HER2 POSITIVE GASTRIC CANCER
     Route: 041
     Dates: start: 2018, end: 2018

REACTIONS (4)
  - Biliary tract infection [Not Recovered/Not Resolved]
  - Bile duct stone [Unknown]
  - Sepsis [Unknown]
  - Cholangitis [Unknown]

NARRATIVE: CASE EVENT DATE: 20210301
